FAERS Safety Report 5652584-3 (Version None)
Quarter: 2008Q1

REPORT INFORMATION
  Report Type: 
  Country: None (occurrence: None)
  Receive Date: 20080306
  Receipt Date: 20080225
  Transmission Date: 20080703
  Serious: Yes (Other)
  Sender: FDA-Public Use
  Company Number: GB-ASTRAZENECA-2007GB02222

PATIENT
  Sex: Male

DRUGS (1)
  1. GOSERELIN [Suspect]
     Indication: PROSTATE CANCER
     Route: 058
     Dates: start: 20060101

REACTIONS (5)
  - ABSCESS NECK [None]
  - BACTERIAL INFECTION [None]
  - DIABETES MELLITUS [None]
  - IMMUNOSUPPRESSION [None]
  - PHARYNGEAL ABSCESS [None]
